FAERS Safety Report 4974627-2 (Version None)
Quarter: 2006Q2

REPORT INFORMATION
  Report Type: 
  Country: None (occurrence: None)
  Receive Date: 20060410
  Receipt Date: 20060322
  Transmission Date: 20061013
  Serious: Yes (Death, Other)
  Sender: FDA-Public Use
  Company Number: GB200603005705

PATIENT
  Age: 26 Year
  Sex: Female

DRUGS (6)
  1. ZYPREXA [Suspect]
     Dosage: 15 MG
     Dates: start: 20051220
  2. FLUOXETINE HCL [Suspect]
  3. TRIMEPRAZINE (ALIMEMAZINE [Concomitant]
  4. NITRAZEPAM [Concomitant]
  5. DIAZEPAM [Concomitant]
  6. MICROGYN (ETHINYLESTRADIOL, LEVONORGESTREL) [Concomitant]

REACTIONS (5)
  - ANTIDEPRESSANT DRUG LEVEL INCREASED [None]
  - DRUG LEVEL ABOVE THERAPEUTIC [None]
  - DRUG LEVEL INCREASED [None]
  - SUDDEN DEATH [None]
  - VICTIM OF HOMICIDE [None]
